FAERS Safety Report 6198807-6 (Version None)
Quarter: 2009Q2

REPORT INFORMATION
  Report Type: 
  Country: None (occurrence: None)
  Receive Date: 20090522
  Receipt Date: 20090512
  Transmission Date: 20091009
  Serious: Yes (Life-Threatening)
  Sender: FDA-Public Use
  Company Number: GR-RANBAXY-2005RR-00681

PATIENT
  Age: 70 Year
  Sex: Female

DRUGS (5)
  1. CIPROFLOXACIN [Suspect]
     Indication: PNEUMONIA
     Route: 042
  2. OLANZAPINE [Suspect]
     Indication: DEPRESSION
  3. AZATHIOPRINE [Concomitant]
  4. VALSARTAN [Concomitant]
  5. FUROSEMIDE [Concomitant]

REACTIONS (2)
  - DRUG INTERACTION [None]
  - ELECTROCARDIOGRAM QT PROLONGED [None]
